FAERS Safety Report 5531717-3 (Version None)
Quarter: 2007Q4

REPORT INFORMATION
  Report Type: 
  Country: None (occurrence: None)
  Receive Date: 20071203
  Receipt Date: 20071128
  Transmission Date: 20080405
  Serious: Yes (Death, Life-Threatening, Hospitalization, Other)
  Sender: FDA-Public Use
  Company Number: JP-BRISTOL-MYERS SQUIBB COMPANY-13891957

PATIENT
  Age: 65 Year
  Sex: Male
  Weight: 42 kg

DRUGS (4)
  1. DASATINIB [Suspect]
     Indication: CHRONIC MYELOID LEUKAEMIA
     Dosage: STARTED ON 26-JUL @ 70MG BID.STOPPED ON 12-JUN-07. RESTARTED ON 25-JUN-07 @50MG BID TILL 30-AUG-07.
     Route: 048
     Dates: start: 20070625, end: 20070831
  2. ALDACTONE [Concomitant]
     Indication: PLEURAL EFFUSION
     Dosage: 25-50 MG/DAY DOSAGE FORM=TABLET
     Route: 048
     Dates: start: 20070111, end: 20070828
  3. TANNALBIN [Concomitant]
     Indication: DIARRHOEA
     Dosage: DOSAGE FORM=POWDER
     Route: 048
     Dates: start: 20070830, end: 20070831
  4. LASIX [Concomitant]

REACTIONS (4)
  - ANOREXIA [None]
  - LUNG NEOPLASM MALIGNANT [None]
  - PNEUMONIA [None]
  - RESPIRATORY FAILURE [None]
